FAERS Safety Report 14330001 (Version 1)
Quarter: 2017Q4

REPORT INFORMATION
  Report Type: Spontaneous
  Country: US (occurrence: US)
  Receive Date: 20171227
  Receipt Date: 20171227
  Transmission Date: 20180321
  Serious: No
  Sender: FDA-Public Use
  Company Number: US-PFIZER INC-2017546614

PATIENT
  Age: 14 Year
  Sex: Male
  Weight: 46.26 kg

DRUGS (1)
  1. QUILLIVANT XR [Suspect]
     Active Substance: METHYLPHENIDATE HYDROCHLORIDE
     Indication: ATTENTION DEFICIT/HYPERACTIVITY DISORDER
     Dosage: 7 MG, 1X/DAY
     Route: 048
     Dates: start: 2014

REACTIONS (5)
  - Drug ineffective [Unknown]
  - Anger [Unknown]
  - Agitation [Not Recovered/Not Resolved]
  - Mood altered [Unknown]
  - Irritability [Not Recovered/Not Resolved]

NARRATIVE: CASE EVENT DATE: 2016
